FAERS Safety Report 4652755-9 (Version None)
Quarter: 2005Q2

REPORT INFORMATION
  Report Type: 
  Country: None (occurrence: None)
  Receive Date: 20050503
  Receipt Date: 20050503
  Transmission Date: 20051028
  Serious: Yes (Other)
  Sender: FDA-Public Use
  Company Number: TRP_0002_2005

PATIENT
  Age: 51 Year
  Sex: Female

DRUGS (2)
  1. RIBASPHERE [Suspect]
     Dosage: DF, PO
     Route: 048
  2. PEGINTERON ALFA-2B/ROCHE PHARMACEUTICALS [Suspect]
     Dosage: DF, SC
     Route: 058

REACTIONS (6)
  - ANAEMIA [None]
  - CHILLS [None]
  - GINGIVAL BLEEDING [None]
  - HEADACHE [None]
  - IRRITABILITY [None]
  - MOOD SWINGS [None]
